FAERS Safety Report 9452390 (Version 1)
Quarter: 2013Q3

REPORT INFORMATION
  Report Type: Spontaneous
  Country: GB (occurrence: GB)
  Receive Date: 20130812
  Receipt Date: 20130812
  Transmission Date: 20140515
  Serious: Yes (Other)
  Sender: FDA-Public Use
  Company Number: GB-ACCORD-018814

PATIENT
  Age: 55 Year
  Sex: Female

DRUGS (7)
  1. ANASTROZOLE [Suspect]
     Indication: PRODUCT USED FOR UNKNOWN INDICATION
     Dosage: UNK
     Dates: start: 2011
  2. ZOLEDRONATE [Suspect]
     Indication: PRODUCT USED FOR UNKNOWN INDICATION
     Dosage: UNK
     Dates: start: 2011
  3. EPIRUBICIN [Concomitant]
     Dosage: UNK, 6 X FEC 75.
     Dates: start: 2010
  4. EVEROLIMUS [Suspect]
     Indication: PRODUCT USED FOR UNKNOWN INDICATION
     Dosage: UNK
     Dates: start: 2013
  5. FLUOROURACIL [Concomitant]
     Dosage: UNK, 6 X FEC 75.
     Dates: start: 2010
  6. DOCETAXEL [Concomitant]
     Dosage: UNK, SIX CYCLES
  7. CYCLOPHOSPHAMIDE [Concomitant]
     Dosage: UNK, 6 X FEC 75.
     Dates: start: 2010

REACTIONS (7)
  - Malignant neoplasm progression [Unknown]
  - Cough [Unknown]
  - Fatigue [Unknown]
  - Metastases to liver [Unknown]
  - Metastases to lung [Unknown]
  - Rash [Recovered/Resolved]
  - Dyspnoea [Unknown]
